FAERS Safety Report 5488864-4 (Version None)
Quarter: 2007Q4

REPORT INFORMATION
  Report Type: 
  Country: None (occurrence: None)
  Receive Date: 20071017
  Receipt Date: 20071010
  Transmission Date: 20080405
  Serious: Yes (Death)
  Sender: FDA-Public Use
  Company Number: FR-GENENTECH-216984

PATIENT
  Sex: Female

DRUGS (9)
  1. RITUXIMAB [Suspect]
     Indication: B-CELL LYMPHOMA
     Dosage: 750 MG, UNK
     Dates: start: 20050622, end: 20050802
  2. RITUXIMAB [Suspect]
     Dosage: 690 MG, UNK
     Dates: start: 20050802, end: 20050802
  3. IFOSFAMIDE [Suspect]
     Indication: B-CELL LYMPHOMA
     Dosage: 10000 MG, UNK
     Dates: start: 20050623, end: 20050803
  4. CARBOPLATIN [Suspect]
     Indication: B-CELL LYMPHOMA
     Dosage: 800 MG, UNK
     Dates: start: 20050623, end: 20050803
  5. ETOPOSIDE [Suspect]
     Indication: B-CELL LYMPHOMA
     Dosage: 200 MG, DAYS 1-3 OF CYCLE
     Dates: start: 20050622, end: 20050805
  6. LENOGRASTIM [Suspect]
     Indication: DRUG USE FOR UNKNOWN INDICATION
  7. ZOFRAN [Concomitant]
     Indication: DRUG USE FOR UNKNOWN INDICATION
     Dosage: 8 MG, UNK
     Dates: start: 20050802, end: 20050806
  8. PRIMPERAN [Concomitant]
     Indication: DRUG USE FOR UNKNOWN INDICATION
     Dates: start: 20050802, end: 20050806
  9. SOLU-MEDROL [Concomitant]
     Indication: DRUG USE FOR UNKNOWN INDICATION
     Dosage: UNK, UNK
     Dates: start: 20050802, end: 20050806

REACTIONS (4)
  - APLASIA [None]
  - CARDIO-RESPIRATORY ARREST [None]
  - SEPTIC SHOCK [None]
  - TACHYCARDIA [None]
